FAERS Safety Report 25974653 (Version 1)
Quarter: 2025Q4

REPORT INFORMATION
  Report Type: Spontaneous
  Country: EU (occurrence: EU)
  Receive Date: 20251029
  Receipt Date: 20251029
  Transmission Date: 20260117
  Serious: Yes (Other)
  Sender: PFIZER
  Company Number: EU-ROCHE-10000412328

PATIENT
  Age: 75 Year
  Sex: Male

DRUGS (15)
  1. RITUXIMAB [Suspect]
     Active Substance: RITUXIMAB
     Indication: Diffuse large B-cell lymphoma
     Dosage: UNK
     Route: 065
     Dates: start: 20250516
  2. RITUXIMAB [Suspect]
     Active Substance: RITUXIMAB
     Dosage: 2ND CYCLE: POLA-R-CHP (+ 1ST IT CHEMOTHERAPY) ON 10/JUN/20253RD CYCLE: POLA-R-CHP (+ 2ND IT CHEMOTHE
     Route: 065
     Dates: start: 20250610
  3. RITUXIMAB [Suspect]
     Active Substance: RITUXIMAB
     Dosage: 3RD CYCLE: POLA-R-CHP (+ 2ND IT CHEMOTHERAPY)
     Route: 065
     Dates: start: 20250701
  4. RITUXIMAB [Suspect]
     Active Substance: RITUXIMAB
     Dosage: 4TH CYCLE: POLA-R-CHP (+ 3RD IT CHEMOTHERAPY)
     Route: 065
     Dates: start: 20250722
  5. RITUXIMAB [Suspect]
     Active Substance: RITUXIMAB
     Dosage: 5TH CYCLE: POLA-R-CHP (+ 4TH IT CHEMOTHERAPY)
     Route: 065
     Dates: start: 20250813
  6. RITUXIMAB [Suspect]
     Active Substance: RITUXIMAB
     Dosage: 6TH CYCLE: POLA-R-CHP
     Route: 065
     Dates: start: 20250903
  7. CYCLOPHOSPHAMIDE [Suspect]
     Active Substance: CYCLOPHOSPHAMIDE
     Indication: Diffuse large B-cell lymphoma
     Dosage: 2ND CYCLE: POLA-R-CHP (+ 1ST IT CHEMOTHERAPY) ON 10/JUN/20253RD CYCLE: POLA-R-CHP (+ 2ND IT CHEMOTHE
     Route: 065
     Dates: start: 20250516
  8. DOXORUBICIN [Suspect]
     Active Substance: DOXORUBICIN
     Indication: Diffuse large B-cell lymphoma
     Dosage: 2ND CYCLE: POLA-R-CHP (+ 1ST IT CHEMOTHERAPY) ON 10/JUN/20253RD CYCLE: POLA-R-CHP (+ 2ND IT CHEMOTHE
     Route: 065
     Dates: start: 20250516
  9. POLATUZUMAB VEDOTIN [Suspect]
     Active Substance: POLATUZUMAB VEDOTIN
     Indication: Diffuse large B-cell lymphoma
     Dosage: 3RD CYCLE: POLA-R-CHP (+ 2ND IT CHEMOTHERAPY) ON 01/JUL/20254TH CYCLE: POLA-R-CHP (+ 3RD IT CHEMOTHE
     Route: 065
     Dates: start: 20250610
  10. PREDNISONE [Suspect]
     Active Substance: PREDNISONE
     Indication: Diffuse large B-cell lymphoma
     Dosage: 2ND CYCLE: POLA-R-CHP (+ 1ST IT CHEMOTHERAPY) ON 10/JUN/20253RD CYCLE: POLA-R-CHP (+ 2ND IT CHEMOTHE
     Route: 065
     Dates: start: 20250516
  11. VINCRISTINE [Suspect]
     Active Substance: VINCRISTINE
     Indication: Diffuse large B-cell lymphoma
     Dosage: UNK
     Route: 065
     Dates: start: 20250516
  12. AMLODIPINE\VALSARTAN [Concomitant]
     Active Substance: AMLODIPINE\VALSARTAN
     Dosage: UNK
  13. CELECOXIB [Concomitant]
     Active Substance: CELECOXIB
     Dosage: UNK
  14. ROSUVASTATIN [Concomitant]
     Active Substance: ROSUVASTATIN
     Dosage: UNK
  15. TRAMADOL [Concomitant]
     Active Substance: TRAMADOL
     Dosage: UNK

REACTIONS (15)
  - Neutropenia [Unknown]
  - Thrombocytopenia [Unknown]
  - Febrile neutropenia [Unknown]
  - Deep vein thrombosis [Unknown]
  - Neuropathy peripheral [Unknown]
  - Anaemia [Unknown]
  - Stomatitis [Unknown]
  - Oral candidiasis [Unknown]
  - Balanoposthitis [Unknown]
  - Urethritis [Unknown]
  - Pyrexia [Unknown]
  - Rhinorrhoea [Unknown]
  - Nasal congestion [Unknown]
  - Hypoaesthesia [Unknown]
  - Paraesthesia [Unknown]
